FAERS Safety Report 7302803-2 (Version None)
Quarter: 2011Q1

REPORT INFORMATION
  Report Type: 
  Country: None (occurrence: None)
  Receive Date: 20110218
  Receipt Date: 20110211
  Transmission Date: 20110831
  Serious: Yes (Other)
  Sender: FDA-Public Use
  Company Number: US-CEPHALON-2011000426

PATIENT
  Age: 91 Year
  Sex: Female

DRUGS (7)
  1. NUVIGIL [Suspect]
     Indication: SOMNOLENCE
     Route: 048
     Dates: start: 20100201
  2. ZETIA [Concomitant]
  3. AGGRENOX [Concomitant]
  4. NORVASC [Concomitant]
     Indication: HYPERTENSION
  5. NUVIGIL [Suspect]
     Route: 048
     Dates: start: 20100207
  6. ACTONEL [Concomitant]
     Indication: OSTEOPOROSIS
  7. NUVIGIL [Suspect]
     Route: 048
     Dates: start: 20100801, end: 20110125

REACTIONS (1)
  - DYSKINESIA [None]
